FAERS Safety Report 5142565-0 (Version None)
Quarter: 2006Q4

REPORT INFORMATION
  Report Type: 
  Country: None (occurrence: None)
  Receive Date: 20061027
  Receipt Date: 20061014
  Transmission Date: 20070319
  Serious: Yes (Other)
  Sender: FDA-Public Use
  Company Number: 2006126786

PATIENT
  Sex: Female
  Weight: 72.5755 kg

DRUGS (5)
  1. NEURONTIN [Suspect]
     Indication: TRIGEMINAL NEURALGIA
     Dosage: 1200 MG (3 IN 1 D)
  2. LYRICA [Suspect]
     Indication: TRIGEMINAL NEURALGIA
     Dosage: 200 MG (100 MG, 2 IN 1 D)
     Dates: start: 20060901, end: 20061001
  3. BACLOFEN [Concomitant]
  4. DILANTIN [Concomitant]
  5. EVISTA [Concomitant]

REACTIONS (8)
  - ABASIA [None]
  - CONDITION AGGRAVATED [None]
  - GAIT DISTURBANCE [None]
  - NEUROPATHY PERIPHERAL [None]
  - OEDEMA PERIPHERAL [None]
  - SOMNOLENCE [None]
  - TRIGEMINAL NEURALGIA [None]
  - WEIGHT INCREASED [None]
